APPROVED DRUG PRODUCT: DESCOVY
Active Ingredient: EMTRICITABINE; TENOFOVIR ALAFENAMIDE FUMARATE
Strength: 120MG;EQ 15MG BASE
Dosage Form/Route: TABLET;ORAL
Application: N208215 | Product #002
Applicant: GILEAD SCIENCES INC
Approved: Jan 7, 2022 | RLD: Yes | RS: No | Type: RX

PATENTS:
Patent 8754065 | Expires: Aug 15, 2032
Patent 9296769 | Expires: Aug 15, 2032
Patent 8754065*PED | Expires: Feb 15, 2033
Patent 9296769*PED | Expires: Feb 15, 2033

EXCLUSIVITY:
Code: M-316 | Date: Jun 20, 2028
Code: ODE-457 | Date: Jan 7, 2029